FAERS Safety Report 21479396 (Version 2)
Quarter: 2022Q4

REPORT INFORMATION
  Report Type: Spontaneous
  Country: TR (occurrence: TR)
  Receive Date: 20221019
  Receipt Date: 20221108
  Transmission Date: 20230112
  Serious: Yes (Death, Other)
  Sender: FDA-Public Use
  Company Number: TR-AMGEN-TURSP2022177706

PATIENT
  Age: 48 Year
  Sex: Female

DRUGS (4)
  1. BEVACIZUMAB [Suspect]
     Active Substance: BEVACIZUMAB
     Indication: Ovarian cancer metastatic
     Dosage: UNK
     Route: 065
  2. BEVACIZUMAB [Suspect]
     Active Substance: BEVACIZUMAB
     Indication: Metastases to peritoneum
  3. GEMCITABINE [Concomitant]
     Active Substance: GEMCITABINE
     Indication: Ovarian cancer metastatic
     Dosage: UNK
  4. GEMCITABINE [Concomitant]
     Active Substance: GEMCITABINE
     Indication: Metastases to peritoneum

REACTIONS (4)
  - Pneumonia aspiration [Fatal]
  - Sepsis [Fatal]
  - Paraneoplastic dermatomyositis [Recovering/Resolving]
  - Off label use [Unknown]
